FAERS Safety Report 4656358-1 (Version None)
Quarter: 2005Q2

REPORT INFORMATION
  Report Type: 
  Country: None (occurrence: None)
  Receive Date: 20050509
  Receipt Date: 20050502
  Transmission Date: 20051028
  Serious: Yes (Hospitalization)
  Sender: FDA-Public Use
  Company Number: US-BRISTOL-MYERS SQUIBB COMPANY-12953626

PATIENT
  Age: 74 Year
  Sex: Female
  Weight: 55 kg

DRUGS (12)
  1. CETUXIMAB [Suspect]
     Indication: NON-SMALL CELL LUNG CANCER
     Dosage: THERAPY START DATE 17-FEB-2005.
     Route: 042
     Dates: start: 20050428, end: 20050428
  2. CARBOPLATIN [Suspect]
     Indication: NON-SMALL CELL LUNG CANCER
     Dosage: THERAPY START DATE 17-FEB-2005.
     Route: 042
     Dates: start: 20050421, end: 20050421
  3. DOCETAXEL [Suspect]
     Indication: NON-SMALL CELL LUNG CANCER
     Dosage: THERAPY START DATE 17-FEB-2005.
     Route: 042
     Dates: start: 20050421, end: 20050421
  4. DIOVAN [Concomitant]
  5. FOSAMAX [Concomitant]
  6. NEXIUM [Concomitant]
  7. NORVASC [Concomitant]
  8. ATENOLOL [Concomitant]
  9. EXTRA STRENGTH TYLENOL [Concomitant]
  10. ATIVAN [Concomitant]
     Indication: ANXIETY
     Dosage: 1 MG EVERY 6 HOURS AS NEEDED (PRN)
     Route: 048
  11. AVELOX [Concomitant]
     Indication: ANTI-INFECTIVE THERAPY
     Route: 048
     Dates: start: 20050426
  12. FAMVIR [Concomitant]
     Indication: STOMATITIS
     Route: 048
     Dates: start: 20050407, end: 20050414

REACTIONS (5)
  - DYSPNOEA [None]
  - HYPOTENSION [None]
  - NEUTROPENIA [None]
  - PYREXIA [None]
  - WHITE BLOOD CELL COUNT DECREASED [None]
